FAERS Safety Report 8101490 (Version 2)
Quarter: 2012Q4

REPORT INFORMATION
  Report Type: 
  Country: US (occurrence: US)
  Receive Date: 20110823
  Receipt Date: 20121004
  Transmission Date: 20130627
  Serious: Yes (Death)
  Sender: FDA-Public Use
  Company Number: US-US-EMD SERONO, INC.-7077481

PATIENT
  Age: 66 None
  Sex: Male
  Weight: 86 kg

DRUGS (1)
  1. REBIF [Suspect]
     Indication: MULTIPLE SCLEROSIS
     Dates: start: 200503, end: 201011

REACTIONS (3)
  - Oesophageal carcinoma [Fatal]
  - Hepatic cancer [Fatal]
  - Metastases to lung [Fatal]
